FAERS Safety Report 23385388 (Version 1)
Quarter: 2024Q1

REPORT INFORMATION
  Report Type: Spontaneous
  Country: FR (occurrence: FR)
  Receive Date: 20240110
  Receipt Date: 20240110
  Transmission Date: 20240409
  Serious: Yes (Life-Threatening, Other)
  Sender: FDA-Public Use
  Company Number: FR-AFSSAPS-AN2023001712

PATIENT
  Age: 68 Year
  Sex: Female
  Weight: 45 kg

DRUGS (13)
  1. CARBOPLATIN [Suspect]
     Active Substance: CARBOPLATIN
     Indication: Ovarian cancer
     Dosage: 5 DOSAGE FORM 3 WEEKS
     Route: 042
     Dates: start: 20170719
  2. CARBOPLATIN [Suspect]
     Active Substance: CARBOPLATIN
     Dosage: 5 DOSAGE FORM 3 WEEKS
     Route: 042
     Dates: start: 202205
  3. PACLITAXEL [Suspect]
     Active Substance: PACLITAXEL
     Indication: Ovarian cancer
     Dosage: 80 MILLIGRAM/SQ. METER, EVERY WEEK
     Route: 042
     Dates: start: 20170719
  4. PACLITAXEL [Suspect]
     Active Substance: PACLITAXEL
     Dosage: 175 MILLIGRAM/SQ. METER  3 WEEKS
     Route: 042
     Dates: start: 202205
  5. OLAPARIB [Suspect]
     Active Substance: OLAPARIB
     Indication: Product used for unknown indication
     Dosage: 650 MILLIGRAM, ONCE A DAY
     Route: 048
     Dates: start: 20221020, end: 20221117
  6. POLYETHYLENE GLYCOLS [Concomitant]
     Active Substance: POLYETHYLENE GLYCOLS
     Indication: Product used for unknown indication
     Dosage: 1 DOSAGE FORM, AS NECESSARY
     Route: 048
  7. PRAZEPAM [Concomitant]
     Active Substance: PRAZEPAM
     Indication: Product used for unknown indication
     Dosage: 10 MILLIGRAM, ONCE A DAY
     Route: 048
  8. PANTOPRAZOLE [Concomitant]
     Active Substance: PANTOPRAZOLE
     Indication: Product used for unknown indication
     Dosage: 40 MILLIGRAM, ONCE A DAY
     Route: 048
  9. CHOLECALCIFEROL [Concomitant]
     Active Substance: CHOLECALCIFEROL
     Indication: Product used for unknown indication
     Dosage: 1 DOSAGE FORM  EVERTY 3 MOMTHS
     Route: 048
  10. BEVACIZUMAB [Concomitant]
     Active Substance: BEVACIZUMAB
     Indication: Product used for unknown indication
     Dosage: UNK
     Route: 042
     Dates: start: 20170726
  11. ATORVASTATIN [Concomitant]
     Active Substance: ATORVASTATIN
     Indication: Product used for unknown indication
     Dosage: 40 MILLIGRAM, ONCE A DAY
     Route: 048
  12. KARDEGIC [Concomitant]
     Active Substance: ASPIRIN DL-LYSINE
     Indication: Product used for unknown indication
     Dosage: 1 DOSAGE FORM, ONCE A DAY
     Route: 048
  13. Spasfon [Concomitant]
     Indication: Product used for unknown indication
     Dosage: 1 DOSAGE FORM, AS NECESSARY
     Route: 048

REACTIONS (1)
  - Myelodysplastic syndrome [Not Recovered/Not Resolved]

NARRATIVE: CASE EVENT DATE: 20231030
